FAERS Safety Report 8808358 (Version 1)
Quarter: 2012Q4

REPORT INFORMATION
  Report Type: 
  Country: GB (occurrence: GB)
  Receive Date: 20120926
  Receipt Date: 20120926
  Transmission Date: 20130627
  Serious: Yes (Other)
  Sender: FDA-Public Use
  Company Number: GB-RANBAXY-2012R1-59130

PATIENT
  Age: 85 Year
  Sex: Female
  Weight: 76 kg

DRUGS (11)
  1. PRAVASTATIN [Suspect]
     Indication: PRODUCT USED FOR UNKNOWN INDICATION
     Dosage: UNK
     Route: 065
     Dates: start: 20120521
  2. ATENOLOL [Concomitant]
     Indication: PRODUCT USED FOR UNKNOWN INDICATION
     Dosage: UNK
     Route: 065
     Dates: start: 20120702, end: 20120730
  3. ATENOLOL [Concomitant]
     Dosage: UNK
     Route: 065
     Dates: start: 20120514, end: 20120611
  4. FUROSEMIDE [Concomitant]
     Indication: PRODUCT USED FOR UNKNOWN INDICATION
     Dosage: UNK
     Route: 065
     Dates: start: 20120702, end: 20120730
  5. FUROSEMIDE [Concomitant]
     Dosage: UNK
     Route: 065
     Dates: start: 20120514, end: 20120611
  6. LISINOPRIL [Concomitant]
     Indication: PRODUCT USED FOR UNKNOWN INDICATION
     Dosage: UNK
     Route: 065
     Dates: start: 20120702, end: 20120730
  7. LISINOPRIL [Concomitant]
     Dosage: UNK
     Route: 065
     Dates: start: 20120514, end: 20120611
  8. LORATADINE [Concomitant]
     Indication: PRODUCT USED FOR UNKNOWN INDICATION
     Dosage: UNK
     Route: 065
     Dates: start: 20120521, end: 20120618
  9. PARACETAMOL [Concomitant]
     Indication: PRODUCT USED FOR UNKNOWN INDICATION
     Dosage: UNK
     Route: 065
     Dates: start: 20120313
  10. WARFARIN SODIUM [Concomitant]
     Indication: PRODUCT USED FOR UNKNOWN INDICATION
     Dosage: UNK
     Route: 065
     Dates: start: 20120705, end: 20120706
  11. WARFARIN SODIUM [Concomitant]
     Dosage: UNK
     Route: 065
     Dates: start: 20120511, end: 20120512

REACTIONS (1)
  - Alopecia [Recovered/Resolved]
